FAERS Safety Report 8415543-3 (Version None)
Quarter: 2012Q2

REPORT INFORMATION
  Report Type: 
  Country: None (occurrence: None)
  Receive Date: 20120606
  Receipt Date: 20120523
  Transmission Date: 20120825
  Serious: Yes (Other)
  Sender: FDA-Public Use
  Company Number: US-ORAPHARMA-QUINORA-2012-027

PATIENT

DRUGS (1)
  1. ARESTIN [Suspect]
     Indication: PERIODONTAL DISEASE
     Dosage: 1 DF, ONE TIME DOSE
     Route: 048
     Dates: start: 20110621, end: 20110621

REACTIONS (4)
  - SYSTEMIC LUPUS ERYTHEMATOSUS [None]
  - ENDOCARDITIS [None]
  - RASH [None]
  - CYSTITIS [None]
